FAERS Safety Report 16412193 (Version 1)
Quarter: 2019Q2

REPORT INFORMATION
  Report Type: Spontaneous
  Country: US (occurrence: US)
  Receive Date: 20190610
  Receipt Date: 20190610
  Transmission Date: 20190711
  Serious: Yes (Hospitalization)
  Sender: FDA-Public Use
  Company Number: US-INCYTE CORPORATION-2019IN005734

PATIENT

DRUGS (1)
  1. JAKAFI [Suspect]
     Active Substance: RUXOLITINIB
     Dosage: 10 MG, UNK
     Route: 065
     Dates: start: 20181029

REACTIONS (5)
  - Accident [Unknown]
  - Renal function test abnormal [Unknown]
  - Viral infection [Unknown]
  - Gait inability [Unknown]
  - Dehydration [Unknown]
